FAERS Safety Report 9930589 (Version 1)
Quarter: 2014Q1

REPORT INFORMATION
  Report Type: Spontaneous
  Country: US (occurrence: US)
  Receive Date: 20140227
  Receipt Date: 20140227
  Transmission Date: 20141002
  Serious: No
  Sender: FDA-Public Use
  Company Number: US-AMGEN-USASP2013089832

PATIENT
  Age: 66 Year
  Sex: Male
  Weight: 61.22 kg

DRUGS (8)
  1. ENBREL [Suspect]
     Indication: RHEUMATOID ARTHRITIS
     Dosage: 50 MG, ONCE A WEEK
     Route: 058
     Dates: start: 201309
  2. ASPIRIN [Concomitant]
     Dosage: UNK EVERY OTHER DAY
  3. PREDNISONE [Concomitant]
     Dosage: UNK
  4. SULFATHIAZOLE [Concomitant]
     Dosage: UNK
  5. SYNTHROID [Concomitant]
     Dosage: UNK
  6. AMLODIPINE [Concomitant]
     Dosage: UNK
  7. CRESTOR [Concomitant]
     Dosage: UNK
  8. QUINAPRIL [Concomitant]
     Dosage: UNK

REACTIONS (3)
  - Contusion [Unknown]
  - Injection site haemorrhage [Unknown]
  - Injection site bruising [Unknown]
